FAERS Safety Report 25707611 (Version 1)
Quarter: 2025Q3

REPORT INFORMATION
  Report Type: Spontaneous
  Country: EU (occurrence: EU)
  Receive Date: 20250820
  Receipt Date: 20250820
  Transmission Date: 20251021
  Serious: Yes (Other)
  Sender: MYLAN
  Company Number: EU-EMB-M202405629-1

PATIENT
  Age: 30 Year
  Sex: Female
  Weight: 77 kg

DRUGS (20)
  1. DYMISTA [Suspect]
     Active Substance: AZELASTINE HYDROCHLORIDE\FLUTICASONE PROPIONATE
     Indication: Hypersensitivity
     Dosage: UNK, QD (STOPPED WITH KNOWLEDGE OF PREGNANCYSINGLE DOSE 137/50 ?G)
     Dates: start: 202404, end: 202405
  2. DYMISTA [Suspect]
     Active Substance: AZELASTINE HYDROCHLORIDE\FLUTICASONE PROPIONATE
     Dosage: UNK, QD (STOPPED WITH KNOWLEDGE OF PREGNANCYSINGLE DOSE 137/50 ?G)
     Dates: start: 202404, end: 202405
  3. DYMISTA [Suspect]
     Active Substance: AZELASTINE HYDROCHLORIDE\FLUTICASONE PROPIONATE
     Dosage: UNK, QD (STOPPED WITH KNOWLEDGE OF PREGNANCYSINGLE DOSE 137/50 ?G)
     Route: 045
     Dates: start: 202404, end: 202405
  4. DYMISTA [Suspect]
     Active Substance: AZELASTINE HYDROCHLORIDE\FLUTICASONE PROPIONATE
     Dosage: UNK, QD (STOPPED WITH KNOWLEDGE OF PREGNANCYSINGLE DOSE 137/50 ?G)
     Route: 045
     Dates: start: 202404, end: 202405
  5. DYMISTA [Suspect]
     Active Substance: AZELASTINE HYDROCHLORIDE\FLUTICASONE PROPIONATE
  6. DYMISTA [Suspect]
     Active Substance: AZELASTINE HYDROCHLORIDE\FLUTICASONE PROPIONATE
  7. DYMISTA [Suspect]
     Active Substance: AZELASTINE HYDROCHLORIDE\FLUTICASONE PROPIONATE
     Route: 045
  8. DYMISTA [Suspect]
     Active Substance: AZELASTINE HYDROCHLORIDE\FLUTICASONE PROPIONATE
     Route: 045
  9. FOSTER [Suspect]
     Active Substance: BECLOMETHASONE\FORMOTEROL
     Indication: Asthma
     Dosage: BID (0.5 DAY), STOPPED WITH KNOWLEDGE OF PREGNANCYSINGLE DOSE: 200/12 ?G
     Dates: start: 202404, end: 202505
  10. FOSTER [Suspect]
     Active Substance: BECLOMETHASONE\FORMOTEROL
     Dosage: BID (0.5 DAY), STOPPED WITH KNOWLEDGE OF PREGNANCYSINGLE DOSE: 200/12 ?G
     Dates: start: 202404, end: 202505
  11. FOSTER [Suspect]
     Active Substance: BECLOMETHASONE\FORMOTEROL
     Dosage: BID (0.5 DAY), STOPPED WITH KNOWLEDGE OF PREGNANCYSINGLE DOSE: 200/12 ?G
     Route: 055
     Dates: start: 202404, end: 202505
  12. FOSTER [Suspect]
     Active Substance: BECLOMETHASONE\FORMOTEROL
     Dosage: BID (0.5 DAY), STOPPED WITH KNOWLEDGE OF PREGNANCYSINGLE DOSE: 200/12 ?G
     Route: 055
     Dates: start: 202404, end: 202505
  13. FOSTER [Suspect]
     Active Substance: BECLOMETHASONE\FORMOTEROL
     Dates: start: 202406, end: 202408
  14. FOSTER [Suspect]
     Active Substance: BECLOMETHASONE\FORMOTEROL
     Dates: start: 202406, end: 202408
  15. FOSTER [Suspect]
     Active Substance: BECLOMETHASONE\FORMOTEROL
     Route: 055
     Dates: start: 202406, end: 202408
  16. FOSTER [Suspect]
     Active Substance: BECLOMETHASONE\FORMOTEROL
     Route: 055
     Dates: start: 202406, end: 202408
  17. FEXOFENADINE [Concomitant]
     Active Substance: FEXOFENADINE HYDROCHLORIDE
     Indication: Hypersensitivity
     Dosage: 180 MILLIGRAM, BID (AS NEEDED, STOPPED WITH KNOWLEDGE OF PREGNANCY)
     Dates: start: 202404, end: 202405
  18. FEXOFENADINE [Concomitant]
     Active Substance: FEXOFENADINE HYDROCHLORIDE
     Dosage: 180 MILLIGRAM, BID (AS NEEDED, STOPPED WITH KNOWLEDGE OF PREGNANCY)
     Route: 048
     Dates: start: 202404, end: 202405
  19. FEXOFENADINE [Concomitant]
     Active Substance: FEXOFENADINE HYDROCHLORIDE
     Dosage: 180 MILLIGRAM, BID (AS NEEDED, STOPPED WITH KNOWLEDGE OF PREGNANCY)
     Route: 048
     Dates: start: 202404, end: 202405
  20. FEXOFENADINE [Concomitant]
     Active Substance: FEXOFENADINE HYDROCHLORIDE
     Dosage: 180 MILLIGRAM, BID (AS NEEDED, STOPPED WITH KNOWLEDGE OF PREGNANCY)
     Dates: start: 202404, end: 202405

REACTIONS (2)
  - Abortion missed [Recovered/Resolved]
  - Exposure during pregnancy [Recovered/Resolved]

NARRATIVE: CASE EVENT DATE: 20240801
